FAERS Safety Report 10253139 (Version 2)
Quarter: 2014Q2

REPORT INFORMATION
  Report Type: Spontaneous
  Country: CO (occurrence: CO)
  Receive Date: 20140623
  Receipt Date: 20140627
  Transmission Date: 20141212
  Serious: Yes (Other)
  Sender: FDA-Public Use
  Company Number: CO-VIIV HEALTHCARE LIMITED-A1078037A

PATIENT
  Sex: Male

DRUGS (8)
  1. KIVEXA [Suspect]
     Indication: PRODUCT USED FOR UNKNOWN INDICATION
     Dosage: 1TAB PER DAY
     Route: 048
  2. ZIDOVUDINE / LAMIVUDINE [Suspect]
     Indication: PRODUCT USED FOR UNKNOWN INDICATION
     Route: 065
  3. ATAZANAVIR [Concomitant]
     Dosage: 300MG PER DAY
     Route: 048
  4. RITONAVIR [Concomitant]
     Dosage: 130MG PER DAY
     Route: 048
  5. DESVENLAFAXINE SUCCINATE [Concomitant]
  6. ALBUTEROL [Concomitant]
  7. BECLOMETASONE [Concomitant]
  8. IPRATROPIUM BROMIDE [Concomitant]

REACTIONS (4)
  - Drug hypersensitivity [Recovered/Resolved]
  - Headache [Recovered/Resolved]
  - Rash generalised [Recovered/Resolved]
  - Anaemia [Unknown]
